FAERS Safety Report 11107310 (Version 3)
Quarter: 2015Q2

REPORT INFORMATION
  Report Type: Spontaneous
  Country: FR (occurrence: FR)
  Receive Date: 20150512
  Receipt Date: 20150608
  Transmission Date: 20150821
  Serious: Yes (Life-Threatening, Other)
  Sender: FDA-Public Use
  Company Number: FR-LEO PHARMA-234373

PATIENT
  Age: 86 Year
  Sex: Male
  Weight: 70 kg

DRUGS (6)
  1. LANZOR [Concomitant]
     Active Substance: LANSOPRAZOLE
     Indication: GASTROOESOPHAGEAL REFLUX DISEASE
  2. LESCOL [Concomitant]
     Active Substance: FLUVASTATIN SODIUM
     Indication: DYSLIPIDAEMIA
     Dates: start: 2005
  3. PICATO [Suspect]
     Active Substance: INGENOL MEBUTATE
     Route: 061
     Dates: start: 20150220, end: 20150222
  4. PICATO [Suspect]
     Active Substance: INGENOL MEBUTATE
     Route: 061
     Dates: start: 20150227, end: 20150301
  5. LANZOR [Concomitant]
     Active Substance: LANSOPRAZOLE
     Indication: GASTRITIS
     Dates: start: 2005
  6. PICATO [Suspect]
     Active Substance: INGENOL MEBUTATE
     Indication: ACTINIC KERATOSIS
     Route: 061
     Dates: start: 20150213, end: 20150215

REACTIONS (3)
  - Inappropriate schedule of drug administration [Unknown]
  - Lentigo maligna [Recovering/Resolving]
  - Squamous cell carcinoma of skin [Recovering/Resolving]

NARRATIVE: CASE EVENT DATE: 20150308
